FAERS Safety Report 8158718-3 (Version None)
Quarter: 2012Q1

REPORT INFORMATION
  Report Type: 
  Country: None (occurrence: None)
  Receive Date: 20120223
  Receipt Date: 20120113
  Transmission Date: 20120608
  Serious: Yes (Other)
  Sender: FDA-Public Use
  Company Number: CA-JNJFOC-20120204714

PATIENT
  Sex: Male
  Weight: 58 kg

DRUGS (1)
  1. REMICADE [Suspect]
     Indication: CROHN'S DISEASE
     Route: 042
     Dates: start: 20110623

REACTIONS (3)
  - OEDEMA PERIPHERAL [None]
  - ARTHRITIS [None]
  - MEDIAL TIBIAL STRESS SYNDROME [None]
